FAERS Safety Report 4315676-7 (Version None)
Quarter: 2004Q1

REPORT INFORMATION
  Report Type: 
  Country: None (occurrence: None)
  Receive Date: 20040310
  Receipt Date: 20040303
  Transmission Date: 20041129
  Serious: Yes (Death)
  Sender: FDA-Public Use
  Company Number: KII-2001-0004421

PATIENT
  Age: 21 Year
  Sex: Female

DRUGS (6)
  1. OXYCONTIN [Suspect]
     Indication: PAIN
     Dosage: 160 MG, BID
  2. OXYCODONE HCL [Suspect]
     Indication: PAIN
     Dosage: 5 MG
  3. NEURONTIN [Suspect]
     Indication: DRUG USE FOR UNKNOWN INDICATION
     Dosage: 600 MG, AM; 1200 MG, PM
  4. DESYREL [Suspect]
     Indication: DRUG USE FOR UNKNOWN INDICATION
     Dosage: 150 MG, HS
  5. SONATA [Suspect]
     Indication: DRUG USE FOR UNKNOWN INDICATION
     Dosage: 10 MG, SEE TEXT, ORAL
     Route: 048
  6. SOMA [Suspect]
     Indication: DRUG USE FOR UNKNOWN INDICATION
     Dosage: 1 TABLET, QID, ORAL
     Route: 048

REACTIONS (6)
  - COMA [None]
  - COMPLETED SUICIDE [None]
  - DEPRESSION [None]
  - MULTI-ORGAN FAILURE [None]
  - MULTIPLE DRUG OVERDOSE [None]
  - STUPOR [None]
